FAERS Safety Report 7476652-9 (Version None)
Quarter: 2011Q2

REPORT INFORMATION
  Report Type: 
  Country: None (occurrence: None)
  Receive Date: 20110510
  Receipt Date: 20110510
  Transmission Date: 20111010
  Serious: Yes (Hospitalization)
  Sender: FDA-Public Use
  Company Number: None

PATIENT
  Sex: Female
  Weight: 90.9 kg

DRUGS (2)
  1. NEXIUM [Suspect]
     Indication: GASTROOESOPHAGEAL REFLUX DISEASE
     Dosage: NEXIUM 40 MG DAILY 047
     Dates: start: 20090901, end: 20110208
  2. PANTOPRAZOLE [Suspect]
     Indication: ARRHYTHMIA
     Dosage: PANTOPRAZOLE SOD DR 40 DAILY 047
     Dates: start: 20110208

REACTIONS (4)
  - HEART RATE DECREASED [None]
  - HEART RATE INCREASED [None]
  - ARRHYTHMIA [None]
  - ATRIOVENTRICULAR BLOCK [None]
